FAERS Safety Report 9203243 (Version 1)
Quarter: 2013Q1

REPORT INFORMATION
  Report Type: Spontaneous
  Country: US (occurrence: None)
  Receive Date: 20120709
  Receipt Date: 20120709
  Transmission Date: 20140127
  Serious: Yes (Other)
  Sender: FDA-Public Use
  Company Number: PHEH2011US07882

PATIENT
  Age: 48 Year
  Sex: Female
  Weight: 60 kg

DRUGS (6)
  1. GLEEVEC (IMATINIB) UNKNOWN [Suspect]
     Indication: CHEMOTHERAPY
     Route: 048
     Dates: start: 20110510, end: 20110621
  2. GLEEVEC (IMATINIB) UNKNOWN [Suspect]
     Indication: NEOPLASM MALIGNANT
     Route: 048
     Dates: start: 20110510, end: 20110621
  3. DEXAMETHASONE (DEXAMETHASONE) [Concomitant]
  4. VITAMIN C [Concomitant]
  5. VITAMIN D3 (COLECALCIFEROL) [Concomitant]
  6. LEVOTHYROXINE (LEVOTHYROXINE) [Concomitant]

REACTIONS (3)
  - Neoplasm progression [None]
  - Neoplasm malignant [None]
  - Paraesthesia [None]
